FAERS Safety Report 9223824 (Version 1)
Quarter: 2013Q2

REPORT INFORMATION
  Report Type: Spontaneous
  Country: US (occurrence: US)
  Receive Date: 20130410
  Receipt Date: 20130410
  Transmission Date: 20140414
  Serious: No
  Sender: FDA-Public Use
  Company Number: US-TEVA-396690USA

PATIENT
  Age: 27 Year
  Sex: Female
  Weight: 80.81 kg

DRUGS (3)
  1. PLAN B ONE-STEP [Suspect]
     Indication: POST COITAL CONTRACEPTION
     Dosage: 1.5 MILLIGRAM DAILY;
     Route: 048
     Dates: start: 20130329, end: 20130329
  2. ADDERAL [Concomitant]
     Indication: ATTENTION DEFICIT/HYPERACTIVITY DISORDER
     Route: 048
     Dates: start: 2009
  3. HCG [Concomitant]
     Indication: MEDICAL DIET
     Route: 048
     Dates: start: 201303

REACTIONS (1)
  - Abdominal pain [Recovered/Resolved]
